FAERS Safety Report 5621725-6 (Version None)
Quarter: 2008Q1

REPORT INFORMATION
  Report Type: 
  Country: None (occurrence: None)
  Receive Date: 20080211
  Receipt Date: 20080128
  Transmission Date: 20080703
  Serious: Yes (Other)
  Sender: FDA-Public Use
  Company Number: US-AMGEN-STX262645

PATIENT
  Sex: Female

DRUGS (1)
  1. ENBREL [Suspect]
     Indication: PSORIASIS
     Dates: start: 20040501

REACTIONS (2)
  - COMPLEMENT FACTOR ABNORMAL [None]
  - IMMUNODEFICIENCY COMMON VARIABLE [None]
